FAERS Safety Report 23673483 (Version 6)
Quarter: 2024Q2

REPORT INFORMATION
  Report Type: Spontaneous
  Country: US (occurrence: US)
  Receive Date: 20240326
  Receipt Date: 20240521
  Transmission Date: 20240716
  Serious: No
  Sender: FDA-Public Use
  Company Number: US-PFIZER INC-202400065331

PATIENT
  Age: 12 Year
  Sex: Female
  Weight: 27.664 kg

DRUGS (1)
  1. GENOTROPIN [Suspect]
     Active Substance: SOMATROPIN
     Dosage: IT SUPPOSED TO BE 1.2 EACH NIGHT UNDER THE SKIN
     Route: 058

REACTIONS (2)
  - Drug dose omission by device [Unknown]
  - Device leakage [Unknown]
